FAERS Safety Report 7735723-X (Version None)
Quarter: 2011Q3

REPORT INFORMATION
  Report Type: 
  Country: None (occurrence: None)
  Receive Date: 20110908
  Receipt Date: 20110824
  Transmission Date: 20111222
  Serious: Yes (Hospitalization, Other)
  Sender: FDA-Public Use
  Company Number: US-BIOGENIDEC-2011BI030357

PATIENT
  Age: 49 Year
  Sex: Female

DRUGS (13)
  1. VITAMIN D [Concomitant]
  2. INSULIN [Concomitant]
  3. MULTI-VITAMIN [Concomitant]
  4. CYMBALTA [Concomitant]
  5. CRESTOR [Concomitant]
  6. FLONASE [Concomitant]
     Route: 045
  7. BUSPAR [Concomitant]
  8. MOBIC [Concomitant]
  9. TYSABRI [Suspect]
     Indication: MULTIPLE SCLEROSIS
     Route: 042
     Dates: start: 20070724, end: 20110722
  10. PROTONIX [Concomitant]
  11. VICODIN [Concomitant]
  12. VESICARE [Concomitant]
  13. SYNTHROID [Concomitant]

REACTIONS (1)
  - B-CELL LYMPHOMA [None]
